FAERS Safety Report 17500481 (Version 1)
Quarter: 2020Q1

REPORT INFORMATION
  Report Type: Spontaneous
  Country: ES (occurrence: ES)
  Receive Date: 20200305
  Receipt Date: 20200305
  Transmission Date: 20200409
  Serious: Yes (Hospitalization)
  Sender: FDA-Public Use
  Company Number: ES-009507513-2002ESP010022

PATIENT
  Age: 70 Year
  Sex: Male

DRUGS (12)
  1. TESTEX [Concomitant]
     Active Substance: TESTOSTERONE
     Indication: HYPOPITUITARISM
     Dosage: 1 AMPOULE, STRENGTH: 250MG/2ML
     Dates: start: 20161014
  2. ESBRIET [Suspect]
     Active Substance: PIRFENIDONE
     Indication: IDIOPATHIC PULMONARY FIBROSIS
     Dosage: 801 MILLIGRAM, Q8H
     Route: 048
     Dates: start: 20191003, end: 20200107
  3. HIDROALTESONA [Concomitant]
     Active Substance: HYDROCORTISONE
     Indication: HYPOPITUITARISM
     Dosage: 20 (UNITS NOT REPORTED)
     Route: 048
     Dates: start: 20081128
  4. EZETIMIBE. [Suspect]
     Active Substance: EZETIMIBE
     Indication: DYSLIPIDAEMIA
     Dosage: 10 MILLIGRAM, QD
     Route: 048
     Dates: start: 20190620, end: 20200107
  5. LERCANIDIPINE [Concomitant]
     Active Substance: LERCANIDIPINE
     Indication: HYPERTENSION
     Dosage: 10 (UNITS NOT REPORTED)
     Dates: start: 20190426
  6. PANTOPRAZOLE [Concomitant]
     Active Substance: PANTOPRAZOLE
     Dosage: 20 (UNITS NOT REPORTED)
     Route: 048
     Dates: start: 20191008
  7. EBASTEL [Concomitant]
     Active Substance: EBASTINE
     Dosage: 20 TABLETS, 10
     Route: 048
     Dates: start: 20190530
  8. ROSUVASTATIN. [Suspect]
     Active Substance: ROSUVASTATIN
     Indication: DYSLIPIDAEMIA
     Dosage: 20 MILLIGRAM, QD
     Route: 048
     Dates: start: 20181205, end: 20200107
  9. BISOPROLOL [Concomitant]
     Active Substance: BISOPROLOL
     Dosage: 2.5 (UNITS NOT REPORTED)
     Route: 048
     Dates: start: 20180803
  10. ADIRO [Concomitant]
     Active Substance: ASPIRIN
     Indication: MYOCARDIAL ISCHAEMIA
     Dosage: 100 (UNITS NOT REPORTED)
     Route: 048
     Dates: start: 20161014
  11. RAMIPRIL. [Concomitant]
     Active Substance: RAMIPRIL
     Indication: HYPERTENSION
     Dosage: 10 (UNITS NOT REPORTED)
     Route: 048
     Dates: start: 20181116
  12. EUTIROX [Concomitant]
     Active Substance: LEVOTHYROXINE SODIUM
     Indication: HYPOPITUITARISM
     Dosage: 100 TABLETS
     Route: 048
     Dates: start: 20200124

REACTIONS (3)
  - Hyperbilirubinaemia [Recovering/Resolving]
  - Hepatitis [Recovering/Resolving]
  - Hypocoagulable state [Recovered/Resolved]

NARRATIVE: CASE EVENT DATE: 20200107
